FAERS Safety Report 7712467-1 (Version None)
Quarter: 2011Q3

REPORT INFORMATION
  Report Type: 
  Country: None (occurrence: None)
  Receive Date: 20110826
  Receipt Date: 20110826
  Transmission Date: 20111222
  Serious: Yes (Other)
  Sender: FDA-Public Use
  Company Number: None

PATIENT
  Age: 44 Year
  Sex: Female
  Weight: 65.77 kg

DRUGS (2)
  1. CIPROFLOXACIN HCL [Suspect]
     Indication: BACTERIAL INFECTION
     Dosage: 500 MG
     Route: 048
     Dates: start: 20110819, end: 20110823
  2. METRONIDAZOLE [Concomitant]
     Indication: BACTERIAL INFECTION
     Dosage: 500 MG
     Route: 048
     Dates: start: 20110819, end: 20110824

REACTIONS (6)
  - PARAESTHESIA [None]
  - CARDIAC ENZYMES INCREASED [None]
  - HEADACHE [None]
  - FLUSHING [None]
  - CHEST PAIN [None]
  - EYE PAIN [None]
